FAERS Safety Report 7430770-X (Version None)
Quarter: 2011Q2

REPORT INFORMATION
  Report Type: 
  Country: None (occurrence: None)
  Receive Date: 20110421
  Receipt Date: 20110412
  Transmission Date: 20111010
  Serious: Yes (Hospitalization, Other)
  Sender: FDA-Public Use
  Company Number: PHHY2011US18086

PATIENT
  Sex: Female
  Weight: 59 kg

DRUGS (13)
  1. KEPPRA [Concomitant]
  2. ELAVIL [Concomitant]
  3. FLEXERIL [Concomitant]
  4. EXJADE [Suspect]
     Dosage: UNK
     Route: 048
     Dates: start: 20110301
  5. BENADRYL [Concomitant]
  6. EXJADE [Suspect]
     Indication: SICKLE CELL ANAEMIA
     Dosage: 1000 MG, DAILY
     Route: 048
     Dates: start: 20110122
  7. DILAUDID [Concomitant]
  8. ZOFRAN [Concomitant]
  9. ASPIRIN [Concomitant]
  10. CARDIZEM LA [Concomitant]
  11. OXYCONTIN [Concomitant]
  12. FOLIC ACID [Concomitant]
  13. TOPAMAX [Concomitant]

REACTIONS (5)
  - DIARRHOEA [None]
  - NAUSEA [None]
  - ABDOMINAL PAIN UPPER [None]
  - VOMITING [None]
  - CONVULSION [None]
